FAERS Safety Report 4457015-7 (Version None)
Quarter: 2004Q3

REPORT INFORMATION
  Report Type: 
  Country: None (occurrence: None)
  Receive Date: 20040923
  Receipt Date: 20040901
  Transmission Date: 20050211
  Serious: Yes (Other)
  Sender: FDA-Public Use
  Company Number: JP-GLAXOSMITHKLINE-B0344688A

PATIENT
  Age: 64 Year
  Sex: Female
  Weight: 63 kg

DRUGS (15)
  1. FLOLAN [Suspect]
     Indication: PULMONARY HYPERTENSION
     Dosage: 4MG PER DAY
     Route: 042
     Dates: start: 20040510
  2. DOBUTREX [Concomitant]
     Indication: PULMONARY HYPERTENSION
     Dosage: 100MG PER DAY
     Route: 042
     Dates: start: 20040510
  3. MODACIN [Concomitant]
     Indication: INFECTION
     Dosage: 2G PER DAY
     Route: 042
     Dates: start: 20040905
  4. SOLDEM 3A [Concomitant]
     Dosage: 500ML PER DAY
     Route: 042
     Dates: start: 20040510
  5. OPALMON [Concomitant]
     Indication: ATHEROSCLEROSIS OBLITERANS
     Dosage: 30MCG PER DAY
     Route: 048
  6. ERYTHROCIN [Concomitant]
     Indication: BRONCHITIS
     Dosage: 600MG PER DAY
     Route: 048
  7. MEVALOTIN [Concomitant]
     Indication: HYPERLIPIDAEMIA
     Dosage: 10MG PER DAY
     Route: 048
  8. BUFFERIN [Concomitant]
     Indication: TRANSIENT ISCHAEMIC ATTACK
     Dosage: 81MG PER DAY
     Route: 048
  9. TAKEPRON [Concomitant]
     Indication: GASTRIC ULCER
     Dosage: 30MG PER DAY
     Route: 048
  10. PANALDINE [Concomitant]
     Indication: TRANSIENT ISCHAEMIC ATTACK
     Dosage: 100MG PER DAY
     Route: 048
     Dates: start: 20040817
  11. DEPAS [Concomitant]
     Indication: DEPRESSION
     Dosage: 1MG PER DAY
     Route: 048
  12. LUDIOMIL [Concomitant]
     Indication: DEPRESSION
     Dosage: 20MG PER DAY
     Route: 048
  13. ASPARA K [Concomitant]
     Indication: HYPOKALAEMIA
     Dosage: 900MG PER DAY
     Route: 048
     Dates: start: 20040707
  14. ACARDI [Concomitant]
     Indication: RIGHT VENTRICULAR FAILURE
     Dosage: 2.5MG PER DAY
     Route: 048
     Dates: start: 20040729
  15. TORSEMIDE [Concomitant]
     Indication: RIGHT VENTRICULAR FAILURE
     Dosage: 2MG PER DAY
     Route: 048
     Dates: start: 20040805

REACTIONS (3)
  - FUNGAL SEPSIS [None]
  - HAEMATOCHEZIA [None]
  - HYPOCHROMIC ANAEMIA [None]
